FAERS Safety Report 20801241 (Version 1)
Quarter: 2022Q2

REPORT INFORMATION
  Report Type: Spontaneous
  Country: US (occurrence: None)
  Receive Date: 20220506
  Receipt Date: 20220506
  Transmission Date: 20220720
  Serious: No
  Sender: FDA-Public Use
  Company Number: None

PATIENT
  Age: 67 Year
  Sex: Female
  Weight: 105.75 kg

DRUGS (3)
  1. PAXLOVID [Suspect]
     Active Substance: NIRMATRELVIR\RITONAVIR
     Indication: COVID-19
     Dosage: FREQUENCY : TWICE A DAY;?OTHER ROUTE : ORAL IN MULTIPLE PILL FORM;?
     Route: 050
     Dates: start: 20220424, end: 20220429
  2. IRBESARTAN [Concomitant]
     Active Substance: IRBESARTAN
  3. ELIQUIS [Concomitant]
     Active Substance: APIXABAN

REACTIONS (5)
  - Symptom recurrence [None]
  - Condition aggravated [None]
  - Treatment delayed [None]
  - COVID-19 [None]
  - General symptom [None]

NARRATIVE: CASE EVENT DATE: 20220429
